FAERS Safety Report 6284806-2 (Version None)
Quarter: 2009Q3

REPORT INFORMATION
  Report Type: 
  Country: None (occurrence: None)
  Receive Date: 20090727
  Receipt Date: 20090715
  Transmission Date: 20100115
  Serious: Yes (Hospitalization)
  Sender: FDA-Public Use
  Company Number: JP-PFIZER INC-2009241844

PATIENT
  Age: 77 Year

DRUGS (4)
  1. SUNITINIB MALATE [Suspect]
     Indication: RENAL CELL CARCINOMA
     Dosage: 37.5 MG, 1X/DAY
     Route: 048
     Dates: start: 20090114
  2. PARIET [Concomitant]
     Dosage: UNK
     Route: 048
     Dates: start: 20080911
  3. MUCOSTA [Concomitant]
     Dosage: UNK
     Route: 048
     Dates: start: 20080911
  4. HARNAL [Concomitant]
     Dosage: UNK
     Route: 048
     Dates: start: 20080911

REACTIONS (1)
  - INTERSTITIAL LUNG DISEASE [None]
